FAERS Safety Report 7393786-8 (Version None)
Quarter: 2011Q2

REPORT INFORMATION
  Report Type: 
  Country: None (occurrence: None)
  Receive Date: 20110405
  Receipt Date: 20110328
  Transmission Date: 20111010
  Serious: Yes (Hospitalization)
  Sender: FDA-Public Use
  Company Number: FR-ELI_LILLY_AND_COMPANY-FR201103007492

PATIENT
  Sex: Male

DRUGS (4)
  1. SUBUTEX [Concomitant]
     Dosage: 2 MG, UNK
     Route: 060
  2. ZYPREXA [Suspect]
     Route: 048
  3. SEROPLEX [Concomitant]
     Dosage: UNK
     Route: 048
  4. MEPRONIZINE [Concomitant]
     Route: 048

REACTIONS (5)
  - CONFUSIONAL STATE [None]
  - BRADYCARDIA [None]
  - INTENTIONAL OVERDOSE [None]
  - LOSS OF CONSCIOUSNESS [None]
  - HYPOTENSION [None]
